FAERS Safety Report 24315147 (Version 1)
Quarter: 2024Q3

REPORT INFORMATION
  Report Type: Spontaneous
  Country: CN (occurrence: CN)
  Receive Date: 20240913
  Receipt Date: 20240913
  Transmission Date: 20241016
  Serious: Yes (Hospitalization, Other)
  Sender: ACCORD
  Company Number: CN-Accord-445475

PATIENT
  Age: 33 Year
  Sex: Male
  Weight: 96 kg

DRUGS (15)
  1. CISPLATIN [Suspect]
     Active Substance: CISPLATIN
     Indication: Nasopharyngeal cancer metastatic
     Dosage: ONCE A WEEK FOR FIVE WEEKS
     Dates: start: 20220628, end: 20220805
  2. GEMCITABINE [Suspect]
     Active Substance: GEMCITABINE
     Indication: Nasopharyngeal cancer metastatic
     Dates: start: 20220913, end: 20220920
  3. NEDAPLATIN [Suspect]
     Active Substance: NEDAPLATIN
     Indication: Nasopharyngeal cancer metastatic
     Dates: start: 20220913, end: 20220920
  4. NIMOTUZUMAB [Suspect]
     Active Substance: NIMOTUZUMAB
     Indication: Nasopharyngeal cancer metastatic
     Dates: start: 20220628, end: 20220805
  5. POTASSIUM CHLORIDE [Concomitant]
     Active Substance: POTASSIUM CHLORIDE
  6. VITAMIN B6 [Concomitant]
     Active Substance: PYRIDOXINE HYDROCHLORIDE
  7. VITAMIN C [Concomitant]
     Active Substance: ASCORBIC ACID
  8. CISPLATIN [Suspect]
     Active Substance: CISPLATIN
     Indication: Nonkeratinising carcinoma of nasopharynx
     Dosage: ONCE A WEEK FOR FIVE WEEKS
     Dates: start: 20220628, end: 20220805
  9. GEMCITABINE [Suspect]
     Active Substance: GEMCITABINE
     Indication: Nonkeratinising carcinoma of nasopharynx
     Dates: start: 20220913, end: 20220920
  10. NEDAPLATIN [Suspect]
     Active Substance: NEDAPLATIN
     Indication: Nonkeratinising carcinoma of nasopharynx
     Dates: start: 20220913, end: 20220920
  11. NIMOTUZUMAB [Suspect]
     Active Substance: NIMOTUZUMAB
     Indication: Nonkeratinising carcinoma of nasopharynx
     Dates: start: 20220628, end: 20220805
  12. NIMOTUZUMAB [Suspect]
     Active Substance: NIMOTUZUMAB
     Indication: Metastases to lymph nodes
     Dates: start: 20220628, end: 20220805
  13. NEDAPLATIN [Suspect]
     Active Substance: NEDAPLATIN
     Indication: Metastases to lymph nodes
     Dates: start: 20220913, end: 20220920
  14. GEMCITABINE [Suspect]
     Active Substance: GEMCITABINE
     Indication: Metastases to lymph nodes
     Dates: start: 20220913, end: 20220920
  15. CISPLATIN [Suspect]
     Active Substance: CISPLATIN
     Indication: Metastases to lymph nodes
     Dosage: ONCE A WEEK FOR FIVE WEEKS
     Dates: start: 20220628, end: 20220805

REACTIONS (1)
  - Wernicke^s encephalopathy [Recovering/Resolving]

NARRATIVE: CASE EVENT DATE: 20220101
